FAERS Safety Report 12701449 (Version 1)
Quarter: 2016Q3

REPORT INFORMATION
  Report Type: Spontaneous
  Country: CZ (occurrence: CZ)
  Receive Date: 20160831
  Receipt Date: 20160831
  Transmission Date: 20161109
  Serious: Yes (Hospitalization)
  Sender: FDA-Public Use
  Company Number: CZ-CIPLA LTD.-2016CZ17936

PATIENT

DRUGS (5)
  1. IRINOTECAN [Suspect]
     Active Substance: IRINOTECAN
     Indication: PANCREATIC CARCINOMA METASTATIC
     Dosage: 180 MG/M2, ON DAY 1, EVERY 2 WEEKS
     Route: 042
  2. OXALIPLATIN. [Suspect]
     Active Substance: OXALIPLATIN
     Indication: PANCREATIC CARCINOMA METASTATIC
     Dosage: 85 MG/M2, ON DAY 1, EVERY 2 WEEKS
     Route: 042
  3. FLUOROURACIL. [Suspect]
     Active Substance: FLUOROURACIL
     Dosage: 2400 MG/M2, CONTINUOUS INFUSION, 46 HOURS, 14 DAYS
     Route: 042
  4. FLUOROURACIL. [Suspect]
     Active Substance: FLUOROURACIL
     Indication: PANCREATIC CARCINOMA METASTATIC
     Dosage: 400 MG/M2, ON DAY 1, EVERY 2 WEEKS
     Route: 040
  5. LEUCOVORIN. [Suspect]
     Active Substance: LEUCOVORIN
     Indication: PANCREATIC CARCINOMA METASTATIC
     Dosage: 400 MG/M2, ON DAY 1, EVERY 2 WEEKS
     Route: 042

REACTIONS (3)
  - Tumour lysis syndrome [Unknown]
  - Peritonitis [Unknown]
  - Sepsis [Unknown]
